FAERS Safety Report 4953448-0 (Version None)
Quarter: 2006Q1

REPORT INFORMATION
  Report Type: 
  Country: None (occurrence: None)
  Receive Date: 20060324
  Receipt Date: 20060223
  Transmission Date: 20060701
  Serious: Yes (Other)
  Sender: FDA-Public Use
  Company Number: EE-ABBOTT-06P-221-0327550-00

PATIENT
  Sex: Male

DRUGS (4)
  1. HUMIRA [Suspect]
     Indication: RHEUMATOID ARTHRITIS
     Route: 058
     Dates: start: 20051026, end: 20060206
  2. METHOTREXATE [Concomitant]
     Indication: RHEUMATOID ARTHRITIS
     Route: 048
     Dates: start: 20051001, end: 20051111
  3. DICLOFENAC [Concomitant]
     Indication: RHEUMATOID ARTHRITIS
     Route: 048
     Dates: start: 20051001, end: 20051111
  4. METHYLPREDNISOLONE ACETATE [Concomitant]
     Indication: RHEUMATOID ARTHRITIS
     Route: 014
     Dates: start: 20060206

REACTIONS (2)
  - ALANINE AMINOTRANSFERASE INCREASED [None]
  - HEPATIC ENZYME INCREASED [None]
